FAERS Safety Report 7106401-5 (Version None)
Quarter: 2010Q4

REPORT INFORMATION
  Report Type: 
  Country: None (occurrence: None)
  Receive Date: 20101116
  Receipt Date: 20100512
  Transmission Date: 20110411
  Serious: No
  Sender: FDA-Public Use
  Company Number: US-PFIZER INC-2010060589

PATIENT
  Sex: Male

DRUGS (3)
  1. TOVIAZ [Suspect]
     Indication: HYPERTONIC BLADDER
     Dosage: UNK
     Dates: start: 20100511
  2. DETROL [Concomitant]
     Dosage: UNK
  3. TAMSULOSIN [Concomitant]
     Dosage: UNK

REACTIONS (2)
  - DRY MOUTH [None]
  - MICTURITION URGENCY [None]
